FAERS Safety Report 8392251-9 (Version None)
Quarter: 2012Q2

REPORT INFORMATION
  Report Type: 
  Country: None (occurrence: None)
  Receive Date: 20120529
  Receipt Date: 20120518
  Transmission Date: 20120825
  Serious: Yes (Other)
  Sender: FDA-Public Use
  Company Number: JP-VERTEX PHARMACEUTICALS INC.-AE-2012-005206

PATIENT
  Age: 55 Year
  Sex: Female

DRUGS (11)
  1. RIBAVIRIN [Concomitant]
     Indication: HEPATITIS C
     Route: 048
     Dates: start: 20120202, end: 20120216
  2. PEGINTERFERON ALFA-2B [Concomitant]
     Indication: HEPATITIS C
     Route: 051
     Dates: start: 20120202
  3. URSO 250 [Concomitant]
     Route: 048
     Dates: start: 20120209
  4. TELAVIC (TELAPREVIR) [Suspect]
     Route: 048
     Dates: start: 20120315, end: 20120423
  5. LENDORMIN [Concomitant]
     Route: 048
  6. TELAVIC (TELAPREVIR) [Suspect]
     Route: 048
     Dates: start: 20120315
  7. LANSOPRAZOLE [Concomitant]
     Route: 048
     Dates: start: 20120205
  8. TELAVIC (TELAPREVIR) [Suspect]
     Indication: HEPATITIS C
     Route: 048
     Dates: start: 20120202, end: 20120315
  9. CMCP [Concomitant]
     Route: 048
  10. ALLEGRA [Concomitant]
     Route: 048
     Dates: start: 20120315, end: 20120412
  11. RIBAVIRIN [Concomitant]
     Route: 048
     Dates: start: 20120216, end: 20120423

REACTIONS (2)
  - PANCYTOPENIA [None]
  - DECREASED APPETITE [None]
